FAERS Safety Report 6462432-X (Version None)
Quarter: 2009Q4

REPORT INFORMATION
  Report Type: 
  Country: None (occurrence: None)
  Receive Date: 20091130
  Receipt Date: 20091130
  Transmission Date: 20100525
  Serious: Yes (Other)
  Sender: FDA-Public Use
  Company Number: US-PFIZER INC-2009248938

PATIENT
  Sex: Female
  Weight: 102 kg

DRUGS (8)
  1. ATORVASTATIN CALCIUM [Suspect]
     Indication: BLOOD CHOLESTEROL INCREASED
     Dates: start: 20081001, end: 20090401
  2. SIMVASTATIN [Suspect]
     Indication: BLOOD CHOLESTEROL
     Dosage: 20/500 MG DAILY
     Dates: start: 20090401
  3. SIMVASTATIN [Suspect]
     Indication: BLOOD TRIGLYCERIDES
  4. METFORMIN [Concomitant]
     Indication: DIABETES MELLITUS
     Dosage: UNK MG, UNK
  5. OMEPRAZOLE [Concomitant]
     Indication: GASTROOESOPHAGEAL REFLUX DISEASE
     Dosage: 20 MG, 1X/DAY
  6. TRIAMTERENE [Concomitant]
     Indication: OEDEMA PERIPHERAL
     Dosage: UNK
  7. ACETYLSALICYLIC ACID [Concomitant]
     Dosage: 81 MG, 1X/DAY
  8. CALCIUM [Concomitant]
     Dosage: UNK

REACTIONS (7)
  - BLOOD TRIGLYCERIDES INCREASED [None]
  - FLATULENCE [None]
  - FLUSHING [None]
  - HIGH DENSITY LIPOPROTEIN DECREASED [None]
  - INSOMNIA [None]
  - LOW DENSITY LIPOPROTEIN INCREASED [None]
  - PARAESTHESIA [None]
